FAERS Safety Report 17228347 (Version 1)
Quarter: 2020Q1

REPORT INFORMATION
  Report Type: Spontaneous
  Country: GB (occurrence: GB)
  Receive Date: 20200103
  Receipt Date: 20200103
  Transmission Date: 20200409
  Serious: Yes (Life-Threatening, Other)
  Sender: FDA-Public Use
  Company Number: GB-TEVA-2019-GB-1161028

PATIENT
  Age: 65 Year
  Sex: Female
  Weight: 96.8 kg

DRUGS (7)
  1. ACETYLSALICYLIC ACID [Concomitant]
     Active Substance: ASPIRIN
     Dosage: AFTER OR WITH FOOD.75 MG PER DAY
     Dates: start: 20191010
  2. BALMOSA [Concomitant]
     Dosage: 3 DOSAGE FORMS
     Dates: start: 20191010
  3. ADCAL-D3 [Concomitant]
     Active Substance: CALCIUM CARBONATE\CHOLECALCIFEROL
     Dosage: 750MG/200UNIT.4 DOSAGE FORMS
     Dates: start: 20191010
  4. EPILIM [Concomitant]
     Active Substance: VALPROATE SODIUM
     Dosage: AT NIGHT.1000 MG PER DAY
     Dates: start: 20191010
  5. PANTOPRAZOLE [Concomitant]
     Active Substance: PANTOPRAZOLE
     Dosage: 20 MG PER DAY
     Dates: start: 20191010
  6. SERTRALINE [Concomitant]
     Active Substance: SERTRALINE HYDROCHLORIDE
     Dosage: 100 MG PER DAY
     Dates: start: 20191010
  7. TRAMADOL. [Suspect]
     Active Substance: TRAMADOL
     Dosage: 50 MG
     Route: 048

REACTIONS (1)
  - Epilepsy [Recovered/Resolved]
